FAERS Safety Report 19836092 (Version 1)
Quarter: 2021Q3

REPORT INFORMATION
  Report Type: Spontaneous
  Country: DE (occurrence: DE)
  Receive Date: 20210915
  Receipt Date: 20210915
  Transmission Date: 20211014
  Serious: Yes (Other)
  Sender: FDA-Public Use
  Company Number: DE-MYLANLABS-2021M1061709

PATIENT
  Age: 75 Year
  Sex: Male

DRUGS (39)
  1. GEMCITABINE. [Suspect]
     Active Substance: GEMCITABINE
     Indication: ADENOCARCINOMA PANCREAS
     Dosage: 1000 MG/M2 (DAY 1 FOR CYCLE 7)
  2. GEMCITABINE. [Suspect]
     Active Substance: GEMCITABINE
     Dosage: 1000 MG/M2 (DAY 8 FOR CYCLE 2)
  3. GEMCITABINE. [Suspect]
     Active Substance: GEMCITABINE
     Dosage: 1000 MG/M2 (DAY 1 FOR CYCLE 5)
  4. GEMCITABINE. [Suspect]
     Active Substance: GEMCITABINE
     Dosage: 800 MG/M2 (DAY 15 FOR CYCLE 6)
  5. GEMCITABINE. [Suspect]
     Active Substance: GEMCITABINE
     Dosage: 1000 MG/M2 (DAY 15 FOR CYCLE 1)
  6. GEMCITABINE. [Suspect]
     Active Substance: GEMCITABINE
     Dosage: 1000 MG/M2 (DAY 1 FOR CYCLE 1)
  7. GEMCITABINE. [Suspect]
     Active Substance: GEMCITABINE
     Dosage: 1000 MG/M2 (DAY 8 FOR CYCLE 5)
  8. PACLITAXEL. [Suspect]
     Active Substance: PACLITAXEL
     Indication: ADENOCARCINOMA PANCREAS
     Dosage: 100 MG/M2 (DAY 15 FOR CYCLE 5)
  9. PACLITAXEL. [Suspect]
     Active Substance: PACLITAXEL
     Dosage: 125 MILLIGRAM/SQ. METER (125 MG/M2 (DAY 8 FOR CYCLE 2))
  10. PACLITAXEL. [Suspect]
     Active Substance: PACLITAXEL
     Dosage: 125 MILLIGRAM/SQ. METER (125 MG/M2 (DAY 1 FOR CYCLE 6))
  11. GEMCITABINE. [Suspect]
     Active Substance: GEMCITABINE
     Dosage: 1000 MG/M2 (DAY 8 FOR CYCLE 6)
  12. GEMCITABINE. [Suspect]
     Active Substance: GEMCITABINE
     Dosage: 800 MG/M2 (DAY 8 FOR CYCLE 4)
  13. GEMCITABINE. [Suspect]
     Active Substance: GEMCITABINE
     Dosage: 1000 MG/M2 (DAY 15 FOR CYCLE 2)
  14. PACLITAXEL. [Suspect]
     Active Substance: PACLITAXEL
     Dosage: 100 MILLIGRAM/SQ. METER (100 MG/M2 (DAY 8 FOR CYCLE 4))
  15. PACLITAXEL. [Suspect]
     Active Substance: PACLITAXEL
     Dosage: 125 MILLIGRAM/SQ. METER (125 MG/M2 (DAY 15 FOR CYCLE 1))
  16. GEMCITABINE. [Suspect]
     Active Substance: GEMCITABINE
     Dosage: 1000 MG/M2 (DAY 1 FOR CYCLE 2)
  17. GEMCITABINE. [Suspect]
     Active Substance: GEMCITABINE
     Dosage: 800 MG/M2 (DAY 8 FOR CYCLE 3)
  18. GEMCITABINE. [Suspect]
     Active Substance: GEMCITABINE
     Dosage: 1000 MG/M2 (DAY 1 FOR CYCLE 4)
  19. GEMCITABINE. [Suspect]
     Active Substance: GEMCITABINE
     Dosage: 1000 MG/M2 (DAY 1 FOR CYCLE 6)
  20. GEMCITABINE. [Suspect]
     Active Substance: GEMCITABINE
     Dosage: 800 MG/M2 (DAY 8 FOR CYCLE 7)
  21. PACLITAXEL. [Suspect]
     Active Substance: PACLITAXEL
     Dosage: 100 MILLIGRAM/SQ. METER (100 MG/M2 (DAY 15 FOR CYCLE 2))
  22. PACLITAXEL. [Suspect]
     Active Substance: PACLITAXEL
     Dosage: 125 MILLIGRAM/SQ. METER (125 MG/M2 (DAY 1 FOR CYCLE 5))
  23. PACLITAXEL. [Suspect]
     Active Substance: PACLITAXEL
     Dosage: 125 MILLIGRAM/SQ. METER (125 MG/M2 (DAY 8 FOR CYCLE 5))
  24. PACLITAXEL. [Suspect]
     Active Substance: PACLITAXEL
     Dosage: 100 MILLIGRAM/SQ. METER (100 MG/M2 (DAY 15 FOR CYCLE 6))
  25. PACLITAXEL. [Suspect]
     Active Substance: PACLITAXEL
     Dosage: 125 MILLIGRAM/SQ. METER (125 MG/M2 (DAY 15 FOR CYCLE 4))
  26. PACLITAXEL. [Suspect]
     Active Substance: PACLITAXEL
     Dosage: 100 MILLIGRAM/SQ. METER (100 MG/M2 (DAY 1 FOR CYCLE 1))
  27. PACLITAXEL. [Suspect]
     Active Substance: PACLITAXEL
     Dosage: 125 MILLIGRAM/SQ. METER (125 MG/M2 (DAY 8 FOR CYCLE 1))
  28. PACLITAXEL. [Suspect]
     Active Substance: PACLITAXEL
     Dosage: 125 MILLIGRAM/SQ. METER (125 MG/M2 (DAY 1 FOR CYCLE 2))
  29. GEMCITABINE. [Suspect]
     Active Substance: GEMCITABINE
     Dosage: 1000 MG/M2 (DAY 15 FOR CYCLE 4)
  30. PACLITAXEL. [Suspect]
     Active Substance: PACLITAXEL
     Dosage: 100 MILLIGRAM/SQ. METER (100 MG/M2 (DAY 8 FOR CYCLE 3))
  31. PACLITAXEL. [Suspect]
     Active Substance: PACLITAXEL
     Dosage: 125 MG/M2 (DAY 1 FOR CYCLE 4)
  32. GEMCITABINE. [Suspect]
     Active Substance: GEMCITABINE
     Dosage: 1000 MG/M2 (DAY 1 FOR CYCLE 3)
  33. PACLITAXEL. [Suspect]
     Active Substance: PACLITAXEL
     Dosage: 100 MILLIGRAM/SQ. METER (100 MG/M2 (DAY 15 FOR CYCLE 7))
  34. GEMCITABINE. [Suspect]
     Active Substance: GEMCITABINE
     Dosage: 1000 MG/M2 (DAY 8 FOR CYCLE 1)
  35. GEMCITABINE. [Suspect]
     Active Substance: GEMCITABINE
     Dosage: 800 MG/M2 (DAY 15 FOR CYCLE 7)
  36. GEMCITABINE. [Suspect]
     Active Substance: GEMCITABINE
     Dosage: 800 MG/M2 (DAY 15 FOR CYCLE 5)
  37. PACLITAXEL. [Suspect]
     Active Substance: PACLITAXEL
     Dosage: 125 MILLIGRAM/SQ. METER (125 MG/M2 (DAY 1 FOR CYCLE 7))
  38. PACLITAXEL. [Suspect]
     Active Substance: PACLITAXEL
     Dosage: 100 MILLIGRAM/SQ. METER (100 MG/M2 (DAY 8 FOR CYCLE 7))
  39. PACLITAXEL. [Suspect]
     Active Substance: PACLITAXEL
     Dosage: 125 MILLIGRAM/SQ. METER (125 MG/M2 (DAY 1 FOR CYCLE 3))

REACTIONS (8)
  - Neutropenia [Unknown]
  - Pyrexia [Unknown]
  - Polyneuropathy [Unknown]
  - Neuropathy peripheral [Unknown]
  - Cholangitis [Unknown]
  - Thrombocytopenia [Unknown]
  - Alopecia [Unknown]
  - Paronychia [Unknown]
